FAERS Safety Report 10653310 (Version 1)
Quarter: 2014Q4

REPORT INFORMATION
  Report Type: Spontaneous
  Country: US (occurrence: US)
  Receive Date: 20141215
  Receipt Date: 20141215
  Transmission Date: 20150529
  Serious: No
  Sender: FDA-Public Use
  Company Number: US-BAUSCH-BL-2014-003549

PATIENT
  Sex: Female

DRUGS (1)
  1. VITRASE [Suspect]
     Active Substance: HYALURONIDASE, OVINE
     Indication: SKIN IMPLANT REMOVAL

REACTIONS (1)
  - Skin atrophy [Unknown]
